FAERS Safety Report 8072130-7 (Version None)
Quarter: 2012Q1

REPORT INFORMATION
  Report Type: 
  Country: None (occurrence: None)
  Receive Date: 20120126
  Receipt Date: 20120118
  Transmission Date: 20120608
  Serious: Yes (Hospitalization)
  Sender: FDA-Public Use
  Company Number: US-US-EMD SERONO, INC.-7064422

PATIENT
  Sex: Male

DRUGS (3)
  1. REBIF [Suspect]
     Route: 058
     Dates: start: 20120110
  2. REBIF [Suspect]
     Route: 058
     Dates: start: 20110606
  3. REBIF [Suspect]
     Indication: MULTIPLE SCLEROSIS
     Route: 058
     Dates: start: 20110209, end: 20110528

REACTIONS (5)
  - MULTIPLE FRACTURES [None]
  - VASCULAR RUPTURE [None]
  - ROAD TRAFFIC ACCIDENT [None]
  - INFLUENZA LIKE ILLNESS [None]
  - WEIGHT DECREASED [None]
